FAERS Safety Report 16016199 (Version 1)
Quarter: 2019Q1

REPORT INFORMATION
  Report Type: Spontaneous
  Country: CN (occurrence: CN)
  Receive Date: 20190228
  Receipt Date: 20190228
  Transmission Date: 20190418
  Serious: Yes (Other)
  Sender: FDA-Public Use
  Company Number: CN-ROCHE-2271068

PATIENT
  Age: 54 Year
  Sex: Female

DRUGS (33)
  1. MABTHERA [Suspect]
     Active Substance: RITUXIMAB
     Route: 065
     Dates: start: 20170206
  2. RITUXIMAB. [Suspect]
     Active Substance: RITUXIMAB
     Route: 065
     Dates: start: 20170330
  3. ENDOXAN [Concomitant]
     Active Substance: CYCLOPHOSPHAMIDE
     Dosage: DAY 1
     Route: 065
     Dates: start: 20160930
  4. EPIRUBICIN [Concomitant]
     Active Substance: EPIRUBICIN
     Dosage: 60 MG ON DAY 1?50 MG ON DAY 2
     Route: 065
     Dates: start: 20160930
  5. DEXAMETHASONE. [Concomitant]
     Active Substance: DEXAMETHASONE
     Dosage: FROM DAY 1 TO DAY 5
     Route: 065
     Dates: start: 20161110
  6. DEXAMETHASONE. [Concomitant]
     Active Substance: DEXAMETHASONE
     Route: 065
     Dates: start: 20170206
  7. CYTARABINE. [Concomitant]
     Active Substance: CYTARABINE
     Indication: B-CELL LYMPHOMA
     Dosage: DAY 2
     Route: 065
     Dates: start: 20161201
  8. CYTARABINE. [Concomitant]
     Active Substance: CYTARABINE
     Route: 065
     Dates: start: 20170206
  9. ETOPOSIDE. [Concomitant]
     Active Substance: ETOPOSIDE
     Indication: B-CELL LYMPHOMA
     Route: 065
     Dates: start: 20170317, end: 20170320
  10. MABTHERA [Suspect]
     Active Substance: RITUXIMAB
     Indication: B-CELL LYMPHOMA
     Dosage: DAY 0?SUBSEQUENT DOSES ON 30/SEP/2016, 21/OCT/2016, 10/NOV/2016, 01/DEC/2016 AND 30/DEC/2016
     Route: 065
     Dates: start: 20160909
  11. EPIRUBICIN [Concomitant]
     Active Substance: EPIRUBICIN
     Dosage: 60 MG ON DAY 1?50 MG ON DAY 2
     Route: 065
     Dates: start: 20161021
  12. CISPLATIN. [Concomitant]
     Active Substance: CISPLATIN
     Dosage: DAY 1
     Route: 065
     Dates: start: 20161230
  13. CYTARABINE. [Concomitant]
     Active Substance: CYTARABINE
     Dosage: 3G DAY2
     Route: 065
     Dates: start: 20161230
  14. ENDOXAN [Concomitant]
     Active Substance: CYCLOPHOSPHAMIDE
     Indication: B-CELL LYMPHOMA
     Dosage: DAY 1
     Route: 065
     Dates: start: 20160909
  15. VINDESINE SULFATE [Concomitant]
     Active Substance: VINDESINE SULFATE
     Dosage: DAY 1
     Route: 065
     Dates: start: 20160930
  16. VINDESINE SULFATE [Concomitant]
     Active Substance: VINDESINE SULFATE
     Dosage: DAY 1
     Route: 065
     Dates: start: 20161021
  17. EPIRUBICIN [Concomitant]
     Active Substance: EPIRUBICIN
     Indication: B-CELL LYMPHOMA
     Dosage: 60 MG ON DAY 1?50 MG ON DAY 2
     Route: 065
     Dates: start: 20160909
  18. DEXAMETHASONE. [Concomitant]
     Active Substance: DEXAMETHASONE
     Dosage: FROM DAY 1 TO DAY 5
     Route: 065
     Dates: start: 20161021
  19. CISPLATIN. [Concomitant]
     Active Substance: CISPLATIN
     Route: 065
     Dates: start: 20170206
  20. VINDESINE SULFATE [Concomitant]
     Active Substance: VINDESINE SULFATE
     Indication: B-CELL LYMPHOMA
     Dosage: DAY 1
     Route: 065
     Dates: start: 20160909
  21. DEXAMETHASONE. [Concomitant]
     Active Substance: DEXAMETHASONE
     Dosage: FROM DAY 1 TO DAY 5
     Route: 065
     Dates: start: 20160930
  22. CARMUSTINE. [Concomitant]
     Active Substance: CARMUSTINE
     Indication: B-CELL LYMPHOMA
     Route: 065
     Dates: start: 20170316
  23. MELPHALAN. [Concomitant]
     Active Substance: MELPHALAN
     Indication: B-CELL LYMPHOMA
     Route: 065
     Dates: start: 20170321
  24. ENDOXAN [Concomitant]
     Active Substance: CYCLOPHOSPHAMIDE
     Dosage: DAY 1
     Route: 065
     Dates: start: 20161021
  25. VINDESINE SULFATE [Concomitant]
     Active Substance: VINDESINE SULFATE
     Dosage: DAY 1
     Route: 065
     Dates: start: 20161110
  26. DEXAMETHASONE. [Concomitant]
     Active Substance: DEXAMETHASONE
     Dosage: FROM DAY 1 TO DAY 5
     Route: 065
     Dates: start: 20161230
  27. CISPLATIN. [Concomitant]
     Active Substance: CISPLATIN
     Indication: B-CELL LYMPHOMA
     Dosage: DAY 1
     Route: 065
     Dates: start: 20161201
  28. CYTARABINE. [Concomitant]
     Active Substance: CYTARABINE
     Route: 065
     Dates: start: 20170317, end: 20170320
  29. RITUXIMAB. [Suspect]
     Active Substance: RITUXIMAB
     Indication: B-CELL LYMPHOMA
     Route: 065
     Dates: start: 20170322
  30. ENDOXAN [Concomitant]
     Active Substance: CYCLOPHOSPHAMIDE
     Dosage: DAY 1
     Route: 065
     Dates: start: 20161110
  31. EPIRUBICIN [Concomitant]
     Active Substance: EPIRUBICIN
     Dosage: 60 MG ON DAY 1?50 MG ON DAY 2
     Route: 065
     Dates: start: 20161110
  32. DEXAMETHASONE. [Concomitant]
     Active Substance: DEXAMETHASONE
     Indication: B-CELL LYMPHOMA
     Dosage: FROM DAY 1 TO DAY 5
     Route: 065
     Dates: start: 20160909
  33. DEXAMETHASONE. [Concomitant]
     Active Substance: DEXAMETHASONE
     Dosage: FROM DAY 1 TO DAY 5
     Route: 065
     Dates: start: 20161201

REACTIONS (5)
  - Diarrhoea [Recovering/Resolving]
  - Hepatic cyst [Unknown]
  - Pyrexia [Recovered/Resolved]
  - Vomiting [Recovering/Resolving]
  - Panniculitis [Unknown]

NARRATIVE: CASE EVENT DATE: 20170318
